FAERS Safety Report 9236485 (Version 1)
Quarter: 2013Q2

REPORT INFORMATION
  Report Type: Spontaneous
  Country: KR (occurrence: KR)
  Receive Date: 20130417
  Receipt Date: 20130417
  Transmission Date: 20140414
  Serious: Yes (Death, Hospitalization)
  Sender: FDA-Public Use
  Company Number: 2013SP003427

PATIENT
  Age: 68 Year
  Sex: Male

DRUGS (14)
  1. VANCOMYCIN [Suspect]
     Indication: STAPHYLOCOCCAL INFECTION
  2. PIPERACILLIN/TAZOBACTAM [Suspect]
     Indication: STAPHYLOCOCCAL INFECTION
  3. CIPROFLOXACIN [Suspect]
     Indication: STAPHYLOCOCCAL INFECTION
  4. ACETYLSALICYLIC ACID [Concomitant]
     Route: 048
  5. CLOPIDOGREL [Concomitant]
     Route: 048
  6. ATORVASTATIN [Concomitant]
     Route: 048
  7. HEPARIN [Concomitant]
     Route: 058
  8. HEPARIN [Concomitant]
     Route: 042
  9. ABCIXIMAB [Concomitant]
     Route: 042
  10. ABCIXIMAB [Concomitant]
     Route: 041
  11. AMPICILLIN SODIUM [Concomitant]
  12. SULBACTAM SODIUM [Concomitant]
  13. AZITHROMYCIN [Concomitant]
  14. METHYLPREDNISOLONE [Concomitant]

REACTIONS (2)
  - Septic shock [Fatal]
  - Drug ineffective [Fatal]
